FAERS Safety Report 24244600 (Version 1)
Quarter: 2024Q3

REPORT INFORMATION
  Report Type: Spontaneous
  Country: US (occurrence: None)
  Receive Date: 20240823
  Receipt Date: 20240823
  Transmission Date: 20241017
  Serious: No
  Sender: EMMAUS LIFE SCIENCES
  Company Number: US-ARIS GLOBAL-EMM202309-000232

PATIENT
  Age: 42 Year
  Sex: Female

DRUGS (2)
  1. ENDARI [Suspect]
     Active Substance: GLUTAMINE
     Indication: Sickle cell disease
     Dosage: 10 G
     Route: 048
     Dates: start: 202304
  2. ENDARI [Suspect]
     Active Substance: GLUTAMINE
     Dosage: 2.5 G (HALF PACKET)
     Route: 048

REACTIONS (2)
  - Hot flush [Recovered/Resolved]
  - Off label use [Unknown]

NARRATIVE: CASE EVENT DATE: 20230101
